FAERS Safety Report 7253285-0 (Version None)
Quarter: 2011Q1

REPORT INFORMATION
  Report Type: 
  Country: None (occurrence: None)
  Receive Date: 20110129
  Receipt Date: 20100317
  Transmission Date: 20110831
  Serious: No
  Sender: FDA-Public Use
  Company Number: US-ABBOTT-10P-163-0633093-00

PATIENT
  Sex: Male
  Weight: 72.64 kg

DRUGS (8)
  1. IMODIUM [Concomitant]
     Indication: DIARRHOEA
  2. CLARINEX [Concomitant]
     Indication: HYPERSENSITIVITY
  3. HUMIRA [Suspect]
     Indication: PRODUCT USED FOR UNKNOWN INDICATION
     Dates: start: 20100101
  4. FOLIC ACID [Concomitant]
     Indication: PRODUCT USED FOR UNKNOWN INDICATION
  5. PRILOSEC [Concomitant]
     Indication: PRODUCT USED FOR UNKNOWN INDICATION
  6. FLONASE [Concomitant]
     Indication: HYPERSENSITIVITY
  7. METHOTREXATE [Concomitant]
     Indication: PRODUCT USED FOR UNKNOWN INDICATION
  8. ADVAIR [Concomitant]
     Indication: ASTHMA

REACTIONS (1)
  - FLATULENCE [None]
